FAERS Safety Report 4580261-9 (Version None)
Quarter: 2005Q1

REPORT INFORMATION
  Report Type: 
  Country: None (occurrence: None)
  Receive Date: 20050214
  Receipt Date: 20050203
  Transmission Date: 20050727
  Serious: Yes (Hospitalization)
  Sender: FDA-Public Use
  Company Number: JP-GLAXOSMITHKLINE-B0370222A

PATIENT
  Age: 67 Year
  Sex: Male
  Weight: 64 kg

DRUGS (12)
  1. PAXIL [Suspect]
     Indication: DEPRESSION
     Route: 048
     Dates: start: 20040707, end: 20050124
  2. BESACOLIN [Concomitant]
     Indication: URINARY RETENTION
     Dosage: 10MG FOUR TIMES PER DAY
     Route: 048
     Dates: start: 20040828, end: 20050124
  3. BLADDERON [Concomitant]
     Indication: URINARY RETENTION
     Dosage: 200MG THREE TIMES PER DAY
     Route: 048
     Dates: start: 20040612, end: 20050124
  4. HARNAL [Concomitant]
     Indication: URINARY RETENTION
     Dosage: .2MG PER DAY
     Route: 048
     Dates: start: 20040612, end: 20050124
  5. LEVOTOMIN [Concomitant]
     Indication: INSOMNIA
     Dosage: 10MG PER DAY
     Route: 048
     Dates: start: 20040810, end: 20050124
  6. SILECE [Concomitant]
     Indication: INSOMNIA
     Dosage: 2MG PER DAY
     Route: 048
     Dates: start: 20040810, end: 20050124
  7. LENDORMIN [Concomitant]
     Indication: INSOMNIA
     Dosage: .25MG PER DAY
     Route: 048
     Dates: start: 20040810, end: 20050124
  8. HALCION [Concomitant]
     Indication: INSOMNIA
     Dosage: .25MG PER DAY
     Route: 048
     Dates: start: 20041225, end: 20050124
  9. PURSENNID [Concomitant]
     Indication: CONSTIPATION
     Dosage: 1U PER DAY
     Route: 048
     Dates: start: 20041225, end: 20050124
  10. AMOBARBITAL [Concomitant]
     Indication: INSOMNIA
     Dosage: .2G PER DAY
     Route: 048
     Dates: start: 20040712, end: 20050124
  11. BROMOVALERYLUREA [Concomitant]
     Indication: INSOMNIA
     Dosage: .3G PER DAY
     Route: 048
     Dates: start: 20040712, end: 20050124
  12. TAMIFLU [Concomitant]
     Route: 048
     Dates: start: 20050117

REACTIONS (11)
  - APHASIA [None]
  - BLOOD SODIUM DECREASED [None]
  - DEPRESSED LEVEL OF CONSCIOUSNESS [None]
  - DISORIENTATION [None]
  - DYSSTASIA [None]
  - HYPONATRAEMIA [None]
  - INFLUENZA [None]
  - MOBILITY DECREASED [None]
  - PYREXIA [None]
  - SOMNOLENCE [None]
  - URINARY INCONTINENCE [None]
